FAERS Safety Report 5445707-2 (Version None)
Quarter: 2007Q3

REPORT INFORMATION
  Report Type: 
  Country: None (occurrence: None)
  Receive Date: 20070904
  Receipt Date: 20070828
  Transmission Date: 20080115
  Serious: Yes (Hospitalization, Other)
  Sender: FDA-Public Use
  Company Number: 2007SP013848

PATIENT
  Age: 45 Year
  Sex: Female
  Weight: 108.8633 kg

DRUGS (11)
  1. PEG-INTRON [Suspect]
     Indication: HEPATITIS C
     Dosage: 150 MCG;QW;SC, 37.5 MCG;QW;SC
     Route: 058
     Dates: start: 20070529, end: 20070619
  2. PEG-INTRON [Suspect]
     Indication: HEPATITIS C
     Dosage: 150 MCG;QW;SC, 37.5 MCG;QW;SC
     Route: 058
     Dates: start: 20070730
  3. RIBAVIRIN [Suspect]
     Indication: HEPATITIS C
     Dosage: 400 MG;BID;PO, BID; PO
     Route: 048
     Dates: start: 20070529, end: 20070611
  4. RIBAVIRIN [Suspect]
     Indication: HEPATITIS C
     Dosage: 400 MG;BID;PO, BID; PO
     Route: 048
     Dates: start: 20070709
  5. TRIAMTERENE AND HYDROCHLOROTHIAZIDE [Concomitant]
  6. ZANTAC 150 [Concomitant]
  7. NEURONTIN [Concomitant]
  8. ADVAIR DISKUS 100/50 [Concomitant]
  9. LUNESTA [Concomitant]
  10. LISINOPRIL [Concomitant]
  11. LODINE XL [Concomitant]

REACTIONS (23)
  - ASTHENIA [None]
  - CHROMATURIA [None]
  - CONSTIPATION [None]
  - CONTUSION [None]
  - COUGH [None]
  - DECREASED APPETITE [None]
  - DEHYDRATION [None]
  - DENTAL CARIES [None]
  - DIZZINESS [None]
  - DYSPNOEA EXERTIONAL [None]
  - FATIGUE [None]
  - FEELING COLD [None]
  - FEELING HOT [None]
  - INCISION SITE INFECTION [None]
  - INFLUENZA LIKE ILLNESS [None]
  - LIVEDO RETICULARIS [None]
  - MOVEMENT DISORDER [None]
  - NAUSEA [None]
  - ORAL INTAKE REDUCED [None]
  - RETCHING [None]
  - VERTIGO [None]
  - VOMITING [None]
  - WEIGHT DECREASED [None]
